FAERS Safety Report 8067246-5 (Version None)
Quarter: 2012Q1

REPORT INFORMATION
  Report Type: 
  Country: None (occurrence: None)
  Receive Date: 20120124
  Receipt Date: 20120119
  Transmission Date: 20120608
  Serious: Yes (Hospitalization)
  Sender: FDA-Public Use
  Company Number: US-GLAXOSMITHKLINE-A0962534A

PATIENT
  Age: 87 Year
  Sex: Female

DRUGS (3)
  1. DIGOXIN [Concomitant]
  2. FLOLAN [Suspect]
     Dosage: 3.5NGKM UNKNOWN
     Route: 065
     Dates: start: 20120109
  3. VIAGRA [Concomitant]

REACTIONS (4)
  - ORAL CANDIDIASIS [None]
  - DYSPNOEA [None]
  - RALES [None]
  - INCONTINENCE [None]
